FAERS Safety Report 6622022-2 (Version None)
Quarter: 2010Q1

REPORT INFORMATION
  Report Type: 
  Country: None (occurrence: None)
  Receive Date: 20100304
  Receipt Date: 20100220
  Transmission Date: 20100710
  Serious: Yes (Death)
  Sender: FDA-Public Use
  Company Number: B0636021A

PATIENT
  Age: 37 Year
  Sex: Female

DRUGS (6)
  1. ZANAMIVIR NEBULISER SOLUTION (ZANAMIVIR) (GENERIC) [Suspect]
     Indication: H1N1 INFLUENZA
     Dosage: 15 MG/ INHALED
     Route: 055
  2. OSELTAMIVIR PHOSPHATE [Suspect]
     Indication: H1N1 INFLUENZA
     Dosage: 75 MG / TWICE PER DAY
  3. ANTIBIOTICS [Concomitant]
  4. IMIPENEM + CILASTATIN NA [Concomitant]
  5. AZITHROMYCIN [Concomitant]
  6. INTUBATION [Concomitant]

REACTIONS (7)
  - ACUTE RESPIRATORY DISTRESS SYNDROME [None]
  - CANDIDIASIS [None]
  - DRUG INEFFECTIVE [None]
  - HAEMOLYSIS [None]
  - PNEUMOTHORAX [None]
  - RENAL FAILURE ACUTE [None]
  - SEPTIC SHOCK [None]
